FAERS Safety Report 4450757-9 (Version None)
Quarter: 2004Q3

REPORT INFORMATION
  Report Type: 
  Country: None (occurrence: None)
  Receive Date: 20040913
  Receipt Date: 20040913
  Transmission Date: 20050211
  Serious: Yes (Disabling)
  Sender: FDA-Public Use
  Company Number: None

PATIENT
  Sex: Male
  Weight: 36.2878 kg

DRUGS (2)
  1. NIX [Suspect]
     Indication: LICE INFESTATION
     Dosage: USED ON SELF 4 OR 5 TIMES AS WELL AS TREATING 4 OTHER FAMILY MEMBERS
     Dates: start: 19940401, end: 19940501
  2. RID ALSO [Suspect]

REACTIONS (5)
  - CONGENITAL ANOMALY [None]
  - DEVELOPMENTAL DELAY [None]
  - MATERNAL DRUGS AFFECTING FOETUS [None]
  - MENTAL RETARDATION SEVERITY UNSPECIFIED [None]
  - SENSORY INTEGRATIVE DYSFUNCTION [None]
